FAERS Safety Report 9305940 (Version 3)
Quarter: 2013Q4

REPORT INFORMATION
  Report Type: Spontaneous
  Country: US (occurrence: US)
  Receive Date: 20130523
  Receipt Date: 20131127
  Transmission Date: 20140711
  Serious: No
  Sender: FDA-Public Use
  Company Number: US-PFIZER INC-2013157552

PATIENT
  Age: 52 Year
  Sex: Male

DRUGS (3)
  1. LOPID [Suspect]
     Dosage: UNK
     Dates: start: 20050105
  2. ACTOS [Suspect]
     Dosage: UNK
     Dates: start: 20041203
  3. METFORMIN [Concomitant]
     Dosage: 500 MG, 2X/DAY

REACTIONS (2)
  - Drug hypersensitivity [Unknown]
  - Rash [Unknown]
